FAERS Safety Report 11327617 (Version 1)
Quarter: 2015Q3

REPORT INFORMATION
  Report Type: Spontaneous
  Country: US (occurrence: None)
  Receive Date: 20150730
  Receipt Date: 20150730
  Transmission Date: 20151125
  Serious: Yes (Life-Threatening, Hospitalization)
  Sender: FDA-Public Use
  Company Number: None

PATIENT
  Age: 70 Year
  Sex: Male
  Weight: 99.5 kg

DRUGS (1)
  1. IBUPROFEN. [Suspect]
     Active Substance: IBUPROFEN
     Indication: PAIN
     Route: 048
     Dates: start: 20140620, end: 20141109

REACTIONS (5)
  - Acute kidney injury [None]
  - Chronic obstructive pulmonary disease [None]
  - Atrial fibrillation [None]
  - Tubulointerstitial nephritis [None]
  - Pneumonia [None]

NARRATIVE: CASE EVENT DATE: 20141108
